FAERS Safety Report 17464324 (Version 2)
Quarter: 2021Q4

REPORT INFORMATION
  Report Type: Report from Study
  Country: US (occurrence: US)
  Receive Date: 20200226
  Receipt Date: 20211116
  Transmission Date: 20220303
  Serious: Yes (Hospitalization)
  Sender: FDA-Public Use
  Company Number: US-PFIZER INC-2020080940

PATIENT
  Age: 20 Year
  Sex: Male
  Weight: 61.5 kg

DRUGS (13)
  1. VINCRISTINE SULFATE [Suspect]
     Active Substance: VINCRISTINE SULFATE
     Indication: Acute lymphocytic leukaemia
     Dosage: 2 MG, SINGLE
     Route: 042
     Dates: start: 20190214
  2. CYTARABINE [Suspect]
     Active Substance: CYTARABINE
     Indication: Acute lymphocytic leukaemia
     Dosage: 200 MG, QD FOR 4 DAYS
     Route: 042
     Dates: start: 20190131, end: 20190203
  3. CYTARABINE [Suspect]
     Active Substance: CYTARABINE
     Dosage: 200 MG, QD FOR 4 DAYS
     Route: 042
     Dates: start: 20190207
  4. METHOTREXATE SODIUM [Suspect]
     Active Substance: METHOTREXATE SODIUM
     Indication: Acute lymphocytic leukaemia
     Dosage: 15 MG, ONCE
     Route: 037
     Dates: start: 20190131
  5. METHOTREXATE SODIUM [Suspect]
     Active Substance: METHOTREXATE SODIUM
     Dosage: 15 MG, ONCE
     Route: 037
     Dates: start: 20190207
  6. METHOTREXATE SODIUM [Suspect]
     Active Substance: METHOTREXATE SODIUM
     Dosage: 15 MG, ONCE
     Route: 037
     Dates: start: 20190214
  7. RUXOLITINIB [Suspect]
     Active Substance: RUXOLITINIB
     Indication: Acute lymphocytic leukaemia
     Dosage: 50 MG, QD TABLET
     Route: 048
     Dates: start: 20190131
  8. MERCAPTOPURINE [Suspect]
     Active Substance: MERCAPTOPURINE
     Indication: Acute lymphocytic leukaemia
     Dosage: 150 MG,QD FOR 14 DAYS, TABLET
     Route: 048
     Dates: start: 20190131
  9. PEGASPARGASE [Suspect]
     Active Substance: PEGASPARGASE
     Indication: Acute lymphocytic leukaemia
     Dosage: 6450 IU, IU/M2, SINGLE
     Route: 042
     Dates: start: 20190214
  10. CYCLOPHOSPHAMIDE [Suspect]
     Active Substance: CYCLOPHOSPHAMIDE
     Indication: Acute lymphocytic leukaemia
     Dosage: 1000 MG/M2, ONCE
     Route: 042
     Dates: start: 20190131
  11. BACTRIM [Concomitant]
     Active Substance: SULFAMETHOXAZOLE\TRIMETHOPRIM
     Dosage: UNK
     Dates: start: 20190214
  12. ACETAMINOPHEN [Concomitant]
     Active Substance: ACETAMINOPHEN
     Dosage: UNK
     Dates: start: 20190202, end: 20190202
  13. CEFTRIAXONE [Concomitant]
     Active Substance: CEFTRIAXONE
     Dosage: UNK
     Dates: start: 20190202, end: 20190202

REACTIONS (8)
  - Febrile neutropenia [Recovered/Resolved]
  - Staphylococcal infection [Recovered/Resolved]
  - Oral herpes [Recovered/Resolved]
  - Febrile neutropenia [Recovered/Resolved]
  - Vomiting [Recovered/Resolved]
  - Abdominal pain [Recovered/Resolved]
  - Capnocytophaga infection [Recovered/Resolved]
  - Bacteraemia [Recovered/Resolved]

NARRATIVE: CASE EVENT DATE: 20190220
